FAERS Safety Report 9829885 (Version 3)
Quarter: 2014Q2

REPORT INFORMATION
  Report Type: Report from Study
  Country: GB (occurrence: GB)
  Receive Date: 20140120
  Receipt Date: 20140408
  Transmission Date: 20141212
  Serious: Yes (Hospitalization, Other)
  Sender: FDA-Public Use
  Company Number: GB-ROCHE-1297137

PATIENT
  Age: 81 Year
  Sex: Male

DRUGS (3)
  1. TOCILIZUMAB [Suspect]
     Indication: RHEUMATOID ARTHRITIS
     Dosage: DATE OF LAST DOSE PRIOR TO SAE: 04/SEP/2012
     Route: 065
     Dates: start: 20120327
  2. RITUXIMAB [Suspect]
     Indication: RHEUMATOID ARTHRITIS
     Dosage: DATE OF LASE DOSE PRIOR TO SAE ON 03/NOV/2011
     Route: 065
     Dates: start: 20111020
  3. METHOTREXATE [Concomitant]
     Route: 065
     Dates: start: 201209

REACTIONS (3)
  - Basal cell carcinoma [Not Recovered/Not Resolved]
  - Tumour ulceration [Unknown]
  - Basal cell carcinoma [Not Recovered/Not Resolved]
